FAERS Safety Report 8263904-8 (Version None)
Quarter: 2012Q2

REPORT INFORMATION
  Report Type: 
  Country: None (occurrence: None)
  Receive Date: 20120406
  Receipt Date: 20120328
  Transmission Date: 20120825
  Serious: Yes (Hospitalization, Other)
  Sender: FDA-Public Use
  Company Number: US-BRISTOL-MYERS SQUIBB COMPANY-16367773

PATIENT
  Age: 72 Year
  Sex: Male
  Weight: 41 kg

DRUGS (1)
  1. ABILIFY [Suspect]
     Indication: PSYCHOTIC DISORDER
     Dosage: 3-4 MONTH AGO
     Route: 048
     Dates: start: 20120201

REACTIONS (2)
  - SEDATION [None]
  - WEIGHT DECREASED [None]
